FAERS Safety Report 10034365 (Version 1)
Quarter: 2014Q1

REPORT INFORMATION
  Report Type: Spontaneous
  Country: US (occurrence: None)
  Receive Date: 20140321
  Receipt Date: 20140321
  Transmission Date: 20141002
  Serious: Yes (Other)
  Sender: FDA-Public Use
  Company Number: 2246351

PATIENT
  Age: 31 Year
  Sex: Male
  Weight: 77.27 kg

DRUGS (2)
  1. DEMEROL [Suspect]
     Indication: PAIN
     Route: 042
     Dates: start: 2014, end: 2014
  2. MIDAZOLAM HYDROCHLORIDE INJECTION (MIDAZOLAM) [Concomitant]

REACTIONS (2)
  - Injection site erythema [None]
  - Injection site urticaria [None]
